FAERS Safety Report 15470194 (Version 1)
Quarter: 2018Q4

REPORT INFORMATION
  Report Type: Report from Study
  Country: FI (occurrence: FI)
  Receive Date: 20181005
  Receipt Date: 20181005
  Transmission Date: 20190205
  Serious: Yes (Other)
  Sender: FDA-Public Use
  Company Number: FI-BAYER-2018-186306

PATIENT
  Age: 52 Year
  Sex: Male

DRUGS (1)
  1. ASPIRIN. [Suspect]
     Active Substance: ASPIRIN
     Dosage: UNK

REACTIONS (5)
  - Drug hypersensitivity [None]
  - Tympanic membrane perforation [None]
  - Otitis media staphylococcal [None]
  - Aspirin-exacerbated respiratory disease [None]
  - Middle ear effusion [None]
